FAERS Safety Report 7888909-8 (Version None)
Quarter: 2011Q4

REPORT INFORMATION
  Report Type: 
  Country: None (occurrence: None)
  Receive Date: 20111101
  Receipt Date: 20111101
  Transmission Date: 20120403
  Serious: Yes (Life-Threatening)
  Sender: FDA-Public Use
  Company Number: None

PATIENT
  Sex: Female
  Weight: 54.4316 kg

DRUGS (2)
  1. LOSARTAN POTASSIUM [Suspect]
     Indication: HYPERTENSION
     Dosage: GENERIC 50 MG. ONCE DAILY MOUTH
     Route: 013
     Dates: start: 20111017
  2. SYNTHROID [Suspect]
     Indication: BLOOD PARATHYROID HORMONE DECREASED
     Dosage: 88 MCG ONCE DAILY ONCE DAILY MOUTH
     Route: 048
     Dates: start: 20111013

REACTIONS (6)
  - BLOOD PRESSURE INCREASED [None]
  - NAUSEA [None]
  - BLOOD PRESSURE INADEQUATELY CONTROLLED [None]
  - INSOMNIA [None]
  - HALLUCINATION [None]
  - HEART RATE INCREASED [None]
